FAERS Safety Report 4491081-8 (Version None)
Quarter: 2004Q4

REPORT INFORMATION
  Report Type: 
  Country: None (occurrence: None)
  Receive Date: 20041027
  Receipt Date: 20041011
  Transmission Date: 20050328
  Serious: Yes (Hospitalization)
  Sender: FDA-Public Use
  Company Number: DSA_25016_2004

PATIENT
  Age: 35 Year
  Sex: Female

DRUGS (3)
  1. TAVOR [Suspect]
     Dates: start: 20040914, end: 20040914
  2. CHAMPAGNE [Suspect]
     Dosage: 0.75 BOTTLE ONCE PO
     Route: 048
     Dates: start: 20040914, end: 20040914
  3. TAXILAN [Suspect]
     Dosage: 750 MG ONCE PO
     Route: 048
     Dates: start: 20040914, end: 20040914

REACTIONS (3)
  - FATIGUE [None]
  - MULTIPLE DRUG OVERDOSE INTENTIONAL [None]
  - TACHYCARDIA [None]
